FAERS Safety Report 17353456 (Version 1)
Quarter: 2020Q1

REPORT INFORMATION
  Report Type: Report from Study
  Country: US (occurrence: US)
  Receive Date: 20200131
  Receipt Date: 20200131
  Transmission Date: 20200409
  Serious: Yes (Death)
  Sender: FDA-Public Use
  Company Number: US-ASTRAZENECA-2020SE14387

PATIENT
  Age: 22635 Day
  Sex: Female

DRUGS (9)
  1. POTASSIUM GLUCONATE [Concomitant]
     Active Substance: POTASSIUM GLUCONATE
  2. VITAMIN E [Concomitant]
     Active Substance: .ALPHA.-TOCOPHEROL
  3. TAGRISSO [Suspect]
     Active Substance: OSIMERTINIB
     Indication: LUNG NEOPLASM MALIGNANT
     Route: 048
     Dates: start: 201610
  4. LORATADINE. [Concomitant]
     Active Substance: LORATADINE
  5. MULTIVITAMINS [Concomitant]
     Active Substance: VITAMINS
  6. TUMS [Concomitant]
     Active Substance: CALCIUM CARBONATE
  7. MIRALAX [Concomitant]
     Active Substance: POLYETHYLENE GLYCOL 3350
  8. ADVIL [Concomitant]
     Active Substance: IBUPROFEN
  9. ZANTAC [Concomitant]
     Active Substance: RANITIDINE HYDROCHLORIDE

REACTIONS (1)
  - Death [Fatal]

NARRATIVE: CASE EVENT DATE: 20200125
